FAERS Safety Report 8247605-8 (Version None)
Quarter: 2012Q1

REPORT INFORMATION
  Report Type: 
  Country: None (occurrence: None)
  Receive Date: 20120330
  Receipt Date: 20120329
  Transmission Date: 20120608
  Serious: Yes (Hospitalization)
  Sender: FDA-Public Use
  Company Number: US-BAYER-2011-019652

PATIENT
  Age: 22 Year
  Sex: Female

DRUGS (2)
  1. MIRENA [Suspect]
     Dosage: DAILY DOSE 20 MCG/24HR
     Route: 015
     Dates: start: 20090501, end: 20091203
  2. IBUPROFEN [Concomitant]

REACTIONS (7)
  - MUSCLE DISORDER [None]
  - SYSTEMIC LUPUS ERYTHEMATOSUS [None]
  - PAIN [None]
  - RASH [None]
  - WEIGHT DECREASED [None]
  - ALOPECIA [None]
  - ASTHENIA [None]
